FAERS Safety Report 6217321-2 (Version None)
Quarter: 2009Q2

REPORT INFORMATION
  Report Type: 
  Country: None (occurrence: None)
  Receive Date: 20090608
  Receipt Date: 20090604
  Transmission Date: 20091009
  Serious: Yes (Other)
  Sender: FDA-Public Use
  Company Number: US-PFIZER INC-2009199380

PATIENT
  Sex: Female
  Weight: 97.522 kg

DRUGS (3)
  1. GEODON [Suspect]
     Indication: BIPOLAR DISORDER
     Dosage: UNK
     Route: 048
     Dates: start: 20080901, end: 20090330
  2. ALL OTHER THERAPEUTIC PRODUCTS [Suspect]
     Indication: BIPOLAR DISORDER
     Dates: start: 20090201, end: 20090301
  3. LAMICTAL [Concomitant]
     Dosage: UNK

REACTIONS (5)
  - ATRIOVENTRICULAR BLOCK COMPLETE [None]
  - ATRIOVENTRICULAR BLOCK FIRST DEGREE [None]
  - BLOOD TEST ABNORMAL [None]
  - MANIA [None]
  - SYNCOPE [None]
